FAERS Safety Report 6000567-6 (Version None)
Quarter: 2008Q4

REPORT INFORMATION
  Report Type: 
  Country: None (occurrence: None)
  Receive Date: 20081211
  Receipt Date: 20081127
  Transmission Date: 20090506
  Serious: Yes (Hospitalization)
  Sender: FDA-Public Use
  Company Number: 230102K08CAN

PATIENT
  Sex: Female

DRUGS (3)
  1. REBIF [Suspect]
     Dosage: 44 MCG, 2 IN 1 WEEKS, SUBCUTANEOUS
     Route: 058
     Dates: start: 19961128
  2. FOSAMAX [Concomitant]
  3. ANTIBIOTIC (ANTIBIOTICS) [Concomitant]

REACTIONS (2)
  - GALLBLADDER CANCER [None]
  - METASTASES TO LYMPH NODES [None]
